FAERS Safety Report 19641557 (Version 5)
Quarter: 2021Q4

REPORT INFORMATION
  Report Type: Report from Study
  Country: CN (occurrence: CN)
  Receive Date: 20210730
  Receipt Date: 20211020
  Transmission Date: 20220303
  Serious: Yes (Hospitalization)
  Sender: FDA-Public Use
  Company Number: CN-PFIZER INC-202100927647

PATIENT
  Age: 71 Year
  Sex: Female
  Weight: 73 kg

DRUGS (68)
  1. TALAZOPARIB [Suspect]
     Active Substance: TALAZOPARIB
     Indication: Neoplasm
     Dosage: 1 MG, CYCLE1: ONCE DAILY FOR DAY-9 AND DAY1-DAY28: CYCLE2-PRESENT: ONCE DAILY IN 28 DAY CYCLES
     Route: 048
     Dates: start: 20210114, end: 20210704
  2. GLIMEPIRIDE [Concomitant]
     Active Substance: GLIMEPIRIDE
     Indication: Type 2 diabetes mellitus
     Dosage: UNK
     Dates: start: 2005, end: 20210710
  3. METFORMIN HYDROCHLORIDE [Concomitant]
     Active Substance: METFORMIN HYDROCHLORIDE
     Indication: Type 2 diabetes mellitus
     Dosage: SUSTAINED RELEASE TABLETS
     Dates: start: 20210706, end: 20210710
  4. METFORMIN HYDROCHLORIDE [Concomitant]
     Active Substance: METFORMIN HYDROCHLORIDE
     Indication: Hyperglycaemia
  5. DEXTROSE\SODIUM CHLORIDE [Concomitant]
     Active Substance: DEXTROSE\SODIUM CHLORIDE
     Indication: Hyponatraemia
     Dosage: 500 ML, NON-PVC FILM
     Dates: start: 20210705, end: 20210705
  6. AMINO ACIDS, SOURCE UNSPECIFIED [Concomitant]
     Active Substance: AMINO ACIDS, SOURCE UNSPECIFIED
     Indication: Hyponatraemia
     Dosage: 250 ML, FAP
     Dates: start: 20210705, end: 20210705
  7. POTASSIUM CHLORIDE [Concomitant]
     Active Substance: POTASSIUM CHLORIDE
     Indication: Hyponatraemia
     Dosage: UNK
     Dates: start: 20210705, end: 20210705
  8. POTASSIUM CHLORIDE [Concomitant]
     Active Substance: POTASSIUM CHLORIDE
     Indication: Supplementation therapy
     Dosage: UNK
     Dates: start: 20210711, end: 20210712
  9. POTASSIUM CHLORIDE [Concomitant]
     Active Substance: POTASSIUM CHLORIDE
     Indication: Hypokalaemia
     Dosage: UNK
     Dates: start: 20210716, end: 20210716
  10. POTASSIUM CHLORIDE [Concomitant]
     Active Substance: POTASSIUM CHLORIDE
     Dosage: UNK
     Dates: start: 20210719, end: 20210722
  11. WATER-SOLUBLE VITAMINS [Concomitant]
     Indication: Hyponatraemia
     Dosage: UNK
     Dates: start: 20210705, end: 20210705
  12. DEXTROSE [Concomitant]
     Active Substance: DEXTROSE
     Indication: Hyponatraemia
     Dosage: UNK
     Dates: start: 20210705, end: 20210705
  13. FUROSEMIDE [Concomitant]
     Active Substance: FUROSEMIDE
     Indication: Hyponatraemia
     Dosage: ALTERNATE DAY (EVERY OTHER DAY)
     Dates: start: 20210705, end: 20210709
  14. FUROSEMIDE [Concomitant]
     Active Substance: FUROSEMIDE
     Indication: Polyuria
     Dosage: UNK
     Dates: start: 20210712, end: 20210712
  15. FUROSEMIDE [Concomitant]
     Active Substance: FUROSEMIDE
     Dosage: UNK
     Dates: start: 20210715, end: 20210715
  16. ALBUMIN HUMAN [Concomitant]
     Active Substance: ALBUMIN HUMAN
     Indication: Hypoalbuminaemia
     Dosage: UNK
     Dates: start: 20210705, end: 20210710
  17. ALBUMIN HUMAN [Concomitant]
     Active Substance: ALBUMIN HUMAN
     Dosage: 20G
     Dates: start: 20210712, end: 20210712
  18. SODIUM CHLORIDE [Concomitant]
     Active Substance: SODIUM CHLORIDE
     Indication: Hyponatraemia
     Dosage: 10% SODIUM CHLORIDE SOLUTION 10 G
     Dates: start: 20210705, end: 20210705
  19. SODIUM CHLORIDE [Concomitant]
     Active Substance: SODIUM CHLORIDE
     Dosage: 10% SODIUM CHLORIDE SOLUTION 10 G
     Dates: start: 20210706, end: 20210711
  20. POTASSIUM CITRATE [Concomitant]
     Active Substance: POTASSIUM CITRATE
     Indication: Hypokalaemia
     Dosage: UNK
     Dates: start: 20210711, end: 20210711
  21. POTASSIUM CITRATE [Concomitant]
     Active Substance: POTASSIUM CITRATE
     Dosage: UNK
     Dates: start: 20210717, end: 20210719
  22. TOLVAPTAN [Concomitant]
     Active Substance: TOLVAPTAN
     Indication: Hyponatraemia
     Dosage: 15 MG, 1X/DAY
     Route: 048
     Dates: start: 20210710, end: 20210710
  23. DOPAMINE [Concomitant]
     Active Substance: DOPAMINE HYDROCHLORIDE
     Indication: Blood pressure increased
     Dosage: UNK
     Dates: start: 20210711, end: 20210711
  24. DOPAMINE [Concomitant]
     Active Substance: DOPAMINE HYDROCHLORIDE
     Indication: Prophylaxis
  25. NOREPINEPHRINE BITARTRATE [Concomitant]
     Active Substance: NOREPINEPHRINE BITARTRATE
     Indication: Blood pressure increased
     Dosage: UNK
     Dates: start: 20210711, end: 20210712
  26. NOREPINEPHRINE BITARTRATE [Concomitant]
     Active Substance: NOREPINEPHRINE BITARTRATE
     Indication: Prophylaxis
  27. FENTANYL [Concomitant]
     Active Substance: FENTANYL
     Indication: Feeling of relaxation
     Dosage: UNK
     Dates: start: 20210711, end: 20210711
  28. FENTANYL [Concomitant]
     Active Substance: FENTANYL
     Indication: Analgesic therapy
  29. FENTANYL [Concomitant]
     Active Substance: FENTANYL
     Indication: Pain
  30. MIDAZOLAM [Concomitant]
     Active Substance: MIDAZOLAM
     Indication: Feeling of relaxation
     Dosage: UNK
     Dates: start: 20210711, end: 20210711
  31. MIDAZOLAM [Concomitant]
     Active Substance: MIDAZOLAM
     Dosage: UNK
     Dates: start: 20210717, end: 20210717
  32. DEXMEDETOMIDINE HYDROCHLORIDE [Concomitant]
     Active Substance: DEXMEDETOMIDINE HYDROCHLORIDE
     Indication: Feeling of relaxation
     Dosage: UNK
     Dates: start: 20210711, end: 20210716
  33. REMIFENTANIL [Concomitant]
     Active Substance: REMIFENTANIL
     Indication: Analgesic therapy
     Dosage: UNK
     Dates: start: 20210711, end: 20210717
  34. REMIFENTANIL [Concomitant]
     Active Substance: REMIFENTANIL
     Indication: Pain
  35. PROPOFOL [Concomitant]
     Active Substance: PROPOFOL
     Indication: Analgesic therapy
     Dosage: PROPOFOL EMULSION
     Dates: start: 20210711, end: 20210711
  36. PROPOFOL [Concomitant]
     Active Substance: PROPOFOL
     Indication: Pain
  37. HYDROCORTISONE [Concomitant]
     Active Substance: HYDROCORTISONE
     Indication: Prophylaxis
     Dosage: UNK
     Dates: start: 20210711, end: 20210712
  38. CEFOXITIN [Concomitant]
     Active Substance: CEFOXITIN SODIUM
     Indication: Anti-infective therapy
     Dosage: UNK
     Dates: start: 20210711, end: 20210711
  39. CEFOXITIN [Concomitant]
     Active Substance: CEFOXITIN SODIUM
     Indication: Pneumonia
  40. CEFOPERAZONE\SULBACTAM [Concomitant]
     Active Substance: CEFOPERAZONE\SULBACTAM
     Indication: Anti-infective therapy
     Dosage: 3 G, CEFOPERAZONE AND SULBACTAM SODIUM
     Dates: start: 20210711, end: 20210713
  41. CEFOPERAZONE\SULBACTAM [Concomitant]
     Active Substance: CEFOPERAZONE\SULBACTAM
     Indication: Pneumonia
  42. ULINASTATIN [Concomitant]
     Active Substance: ULINASTATIN
     Indication: Routine health maintenance
     Dosage: UNK
     Dates: start: 20210712, end: 20210712
  43. SUCCINYLCHOLINE CHLORIDE [Concomitant]
     Active Substance: SUCCINYLCHOLINE CHLORIDE
     Indication: Routine health maintenance
     Dosage: SUCCINYL GELATIN
     Dates: start: 20210713, end: 20210713
  44. GANGLIOSIDE : GM1 SODIUM [Concomitant]
     Indication: Nutritional supplementation
     Dosage: UNK
     Dates: start: 20210711, end: 20210711
  45. HUMAN RED BLOOD CELL [Concomitant]
     Active Substance: HUMAN RED BLOOD CELL
     Indication: Anaemia
     Dosage: INFUSION OF RED BLOOD CELL SUSPENSION
     Dates: start: 20210713, end: 20210713
  46. HEPARIN CALCIUM [Concomitant]
     Active Substance: HEPARIN CALCIUM
     Indication: Anticoagulant therapy
     Dosage: UNK
     Dates: start: 20210711, end: 20210723
  47. HEPARIN CALCIUM [Concomitant]
     Active Substance: HEPARIN CALCIUM
     Indication: Embolism
  48. HEPARIN SODIUM [Concomitant]
     Active Substance: HEPARIN SODIUM
     Indication: Anticoagulant therapy
     Dosage: UNK
     Dates: start: 20210711, end: 20210719
  49. HEPARIN SODIUM [Concomitant]
     Active Substance: HEPARIN SODIUM
     Indication: Embolism
  50. SODIUM POTASSIUM MAGNESIUM CALCIUM AND GLUCOSE [Concomitant]
     Indication: Supplementation therapy
     Dosage: UNK
     Dates: start: 20210711, end: 20210713
  51. INSULIN NOS [Concomitant]
     Active Substance: INSULIN NOS
     Indication: Type 2 diabetes mellitus
     Dosage: UNK
     Dates: start: 20210705, end: 20210705
  52. INSULIN NOS [Concomitant]
     Active Substance: INSULIN NOS
     Indication: Hyperglycaemia
     Dosage: UNK
     Dates: start: 20210711, end: 20210714
  53. INSULIN NOS [Concomitant]
     Active Substance: INSULIN NOS
     Indication: Hyponatraemia
     Dosage: UNK
     Dates: start: 20210719, end: 20210721
  54. DESLANOSIDE [Concomitant]
     Active Substance: DESLANOSIDE
     Indication: Cardiac disorder
     Dosage: UNK
     Dates: start: 20210712, end: 20210713
  55. LYSINE ACETYLSALICYLATE [Concomitant]
     Active Substance: ASPIRIN DL-LYSINE
     Indication: Hypernatraemia
     Dosage: UNK
     Dates: start: 20210711, end: 20210711
  56. LYSINE ACETYLSALICYLATE [Concomitant]
     Active Substance: ASPIRIN DL-LYSINE
     Dosage: UNK
     Dates: start: 20210715, end: 20210715
  57. SODIUM CHLORIDE [Concomitant]
     Active Substance: SODIUM CHLORIDE
     Indication: Hyponatraemia
     Dosage: UNK
     Dates: start: 20210706, end: 20210711
  58. SODIUM CHLORIDE [Concomitant]
     Active Substance: SODIUM CHLORIDE
     Indication: Hypernatraemia
     Dosage: UNK
     Dates: start: 20210711, end: 20210719
  59. DEXAMETHASONE [Concomitant]
     Active Substance: DEXAMETHASONE
     Indication: Shock
     Dosage: UNK
     Dates: start: 20210712, end: 20210712
  60. TORSEMIDE [Concomitant]
     Active Substance: TORSEMIDE
     Indication: Diuretic therapy
     Dosage: UNK
     Dates: start: 20210711, end: 20210711
  61. LIDOCAINE [Concomitant]
     Active Substance: LIDOCAINE
     Indication: Local anaesthesia
     Dosage: UNK
     Dates: start: 20210711, end: 20210711
  62. TERBUTALINE SULFATE [Concomitant]
     Active Substance: TERBUTALINE SULFATE
     Indication: Pneumonia
     Dosage: UNK
     Dates: start: 20210711, end: 20210719
  63. .ALPHA.-ASARONE [Concomitant]
     Active Substance: .ALPHA.-ASARONE
     Indication: Pneumonia
     Dosage: UNK
     Dates: start: 20210711, end: 20210719
  64. CEFTAZIDIME [Concomitant]
     Active Substance: CEFTAZIDIME
     Indication: Pneumonia
     Dosage: UNK
     Dates: start: 20210713, end: 20210819
  65. DEXTROSE [Concomitant]
     Active Substance: DEXTROSE
     Indication: Hypernatraemia
     Dosage: UNK
     Dates: start: 20210711, end: 20210712
  66. DEXTROSE [Concomitant]
     Active Substance: DEXTROSE
     Dosage: UNK
     Dates: start: 20210714, end: 20210714
  67. DEXTROSE [Concomitant]
     Active Substance: DEXTROSE
     Dosage: UNK
     Dates: start: 20210715, end: 20210715
  68. MANNITOL [Concomitant]
     Active Substance: MANNITOL
     Indication: Hypernatraemia
     Dosage: UNK
     Dates: start: 20210711, end: 20210711

REACTIONS (1)
  - Hyponatraemia [Recovered/Resolved]

NARRATIVE: CASE EVENT DATE: 20210719
